FAERS Safety Report 9191559 (Version 2)
Quarter: 2013Q2

REPORT INFORMATION
  Report Type: Report from Study
  Country: US (occurrence: US)
  Receive Date: 20130326
  Receipt Date: 20130416
  Transmission Date: 20140414
  Serious: Yes (Death, Hospitalization, Other)
  Sender: FDA-Public Use
  Company Number: US-ACTELION-A-US2013-80746

PATIENT
  Age: 86 Year
  Sex: Female

DRUGS (1)
  1. TRACLEER [Suspect]
     Indication: PULMONARY ARTERIAL HYPERTENSION
     Dosage: UNK
     Route: 048
     Dates: end: 20130303

REACTIONS (6)
  - Cardiac failure congestive [Fatal]
  - Fall [Unknown]
  - Fracture [Unknown]
  - Cardiac disorder [Unknown]
  - Condition aggravated [Unknown]
  - Hospice care [Unknown]
